FAERS Safety Report 24190115 (Version 1)
Quarter: 2024Q3

REPORT INFORMATION
  Report Type: Spontaneous
  Country: US (occurrence: US)
  Receive Date: 20240808
  Receipt Date: 20240808
  Transmission Date: 20241017
  Serious: No
  Sender: JOHNSON AND JOHNSON
  Company Number: US-JNJFOC-20240780782

PATIENT
  Age: 26 Year
  Sex: Female

DRUGS (3)
  1. WOMENS ROGAINE [Suspect]
     Active Substance: MINOXIDIL
     Indication: Alopecia
     Route: 061
     Dates: start: 20240713, end: 202407
  2. WOMENS ROGAINE [Suspect]
     Active Substance: MINOXIDIL
     Indication: Dry skin
  3. ACCUTANE [Concomitant]
     Active Substance: ISOTRETINOIN
     Indication: Product used for unknown indication
     Route: 065

REACTIONS (3)
  - Application site exfoliation [Recovering/Resolving]
  - Skin disorder [Recovering/Resolving]
  - Inappropriate schedule of product administration [Unknown]

NARRATIVE: CASE EVENT DATE: 20240713
